FAERS Safety Report 16684138 (Version 1)
Quarter: 2019Q3

REPORT INFORMATION
  Report Type: Spontaneous
  Country: US (occurrence: US)
  Receive Date: 20190808
  Receipt Date: 20190808
  Transmission Date: 20191004
  Serious: Yes (Hospitalization)
  Sender: FDA-Public Use
  Company Number: US-JNJFOC-20190806402

PATIENT
  Age: 88 Year
  Sex: Female
  Weight: 56.2 kg

DRUGS (11)
  1. FIRDAPSE [Suspect]
     Active Substance: AMIFAMPRIDINE
     Route: 048
     Dates: start: 20190722, end: 20190722
  2. FENTANYL. [Concomitant]
     Active Substance: FENTANYL
     Route: 062
  3. HALDOL [Suspect]
     Active Substance: HALOPERIDOL
     Indication: AGGRESSION
     Route: 065
     Dates: start: 20190720
  4. FIRDAPSE [Suspect]
     Active Substance: AMIFAMPRIDINE
     Route: 048
     Dates: start: 2018, end: 20190718
  5. FIRDAPSE [Suspect]
     Active Substance: AMIFAMPRIDINE
     Route: 048
     Dates: start: 20190723
  6. METOPROLOL. [Concomitant]
     Active Substance: METOPROLOL
  7. FLECAINIDE [Concomitant]
     Active Substance: FLECAINIDE
  8. ELIQUIS [Concomitant]
     Active Substance: APIXABAN
  9. FIRDAPSE [Suspect]
     Active Substance: AMIFAMPRIDINE
     Indication: MYASTHENIC SYNDROME
     Route: 048
     Dates: start: 2018, end: 20190718
  10. FIRDAPSE [Suspect]
     Active Substance: AMIFAMPRIDINE
     Route: 048
     Dates: start: 20190723
  11. MESTINON [Concomitant]
     Active Substance: PYRIDOSTIGMINE BROMIDE
     Route: 065

REACTIONS (2)
  - Somnolence [Recovered/Resolved]
  - Heart rate increased [Recovered/Resolved]

NARRATIVE: CASE EVENT DATE: 20190718
